FAERS Safety Report 16464565 (Version 1)
Quarter: 2019Q3

REPORT INFORMATION
  Report Type: Spontaneous
  Country: US (occurrence: US)
  Receive Date: 20190620
  Receipt Date: 20190620
  Transmission Date: 20191004
  Serious: Yes (Other)
  Sender: FDA-Public Use
  Company Number: None

PATIENT
  Sex: Female
  Weight: 70.65 kg

DRUGS (3)
  1. SOMADERM HGH GEL [Suspect]
     Active Substance: HOMEOPATHICS
     Indication: WEIGHT DECREASED
  2. SOMADERM HGH GEL [Suspect]
     Active Substance: HOMEOPATHICS
     Indication: ASTHENIA
  3. SOMADERM HGH GEL [Suspect]
     Active Substance: HOMEOPATHICS
     Indication: SLEEP DISORDER

REACTIONS (2)
  - Seizure [None]
  - Cerebral disorder [None]
